FAERS Safety Report 14519442 (Version 7)
Quarter: 2018Q3

REPORT INFORMATION
  Report Type: Spontaneous
  Country: SK (occurrence: SK)
  Receive Date: 20180212
  Receipt Date: 20180713
  Transmission Date: 20181010
  Serious: Yes (Death, Other)
  Sender: FDA-Public Use
  Company Number: SK-MYLANLABS-2018M1009038

PATIENT
  Age: 71 Year
  Sex: Male
  Weight: 75 kg

DRUGS (10)
  1. PACLITAXEL. [Suspect]
     Active Substance: PACLITAXEL
     Dosage: ON 1., 8., 15 DAY EVERY 28 DAYS
     Route: 042
     Dates: start: 20170201, end: 20170501
  2. PACLITAXEL. [Suspect]
     Active Substance: PACLITAXEL
     Dosage: NAB?P 125 MG2 I.V.
     Route: 042
  3. FLUOROURACIL. [Suspect]
     Active Substance: FLUOROURACIL
     Indication: PANCREATIC CARCINOMA METASTATIC
     Dosage: 425 MG/M2, UNK DAYS 1?5
     Route: 042
  4. GEMCITABINE [Suspect]
     Active Substance: GEMCITABINE\GEMCITABINE HYDROCHLORIDE
     Dosage: 1000 MG/M2, D1, 8, 15, NC AND DAY 28
     Route: 042
  5. CALCIUM FOLINATE [Suspect]
     Active Substance: LEUCOVORIN CALCIUM
     Indication: PANCREATIC CARCINOMA METASTATIC
     Dosage: UNK
     Route: 065
  6. INSULIN [Concomitant]
     Active Substance: INSULIN NOS
     Indication: DIABETES MELLITUS
     Dosage: UNK
     Route: 065
  7. GEMCITABINE [Suspect]
     Active Substance: GEMCITABINE\GEMCITABINE HYDROCHLORIDE
     Indication: PANCREATIC CARCINOMA METASTATIC
     Dosage: ON 1., 8., 15 DAY EVERY 28 DAYS
     Route: 042
     Dates: start: 20161220, end: 20170201
  8. INSULIN [Concomitant]
     Active Substance: INSULIN NOS
     Dosage: UNK
  9. PACLITAXEL. [Suspect]
     Active Substance: PACLITAXEL
     Indication: PANCREATIC CARCINOMA METASTATIC
     Dosage: ON 1., 8., 15 DAY EVERY 28 DAYS
     Route: 042
     Dates: start: 20161220, end: 20170201
  10. GEMCITABINE [Suspect]
     Active Substance: GEMCITABINE\GEMCITABINE HYDROCHLORIDE
     Dosage: ON 1., 8., 15 DAY EVERY 28 DAYS
     Route: 042
     Dates: start: 20170201, end: 20170501

REACTIONS (15)
  - Constipation [Fatal]
  - Oedema peripheral [Fatal]
  - Malignant neoplasm progression [Fatal]
  - Pancreatic carcinoma metastatic [Fatal]
  - Hepatotoxicity [Unknown]
  - Thrombocytopenia [Unknown]
  - Bacteriuria [Unknown]
  - Abdominal pain [Unknown]
  - Dysuria [Unknown]
  - Venous thrombosis [Fatal]
  - Ascites [Fatal]
  - Dyspnoea [Fatal]
  - Leukocyturia [Unknown]
  - Urinary tract infection [Unknown]
  - Thrombophlebitis [Fatal]

NARRATIVE: CASE EVENT DATE: 20170201
